FAERS Safety Report 14574668 (Version 1)
Quarter: 2018Q1

REPORT INFORMATION
  Report Type: Report from Study
  Country: None (occurrence: US)
  Receive Date: 20180227
  Receipt Date: 20180227
  Transmission Date: 20180509
  Serious: Yes (Hospitalization, Other)
  Sender: FDA-Public Use
  Company Number: US-ABBVIE-18K-163-2258244-00

PATIENT
  Age: 67 Year
  Sex: Female

DRUGS (2)
  1. HUMIRA [Suspect]
     Active Substance: ADALIMUMAB
     Indication: PSORIASIS
  2. HUMIRA [Suspect]
     Active Substance: ADALIMUMAB
     Indication: RHEUMATOID ARTHRITIS
     Route: 058

REACTIONS (11)
  - Loss of consciousness [Recovered/Resolved]
  - Pneumonia bacterial [Recovered/Resolved]
  - Bacterial sepsis [Recovered/Resolved]
  - Constipation [Recovering/Resolving]
  - Laryngitis [Recovered/Resolved]
  - Bronchitis [Recovered/Resolved]
  - Influenza [Recovering/Resolving]
  - Mobility decreased [Recovered/Resolved]
  - Asthenia [Recovered/Resolved]
  - Decreased appetite [Recovered/Resolved]
  - Urinary tract infection [Recovered/Resolved]

NARRATIVE: CASE EVENT DATE: 2017
